FAERS Safety Report 7052023-4 (Version None)
Quarter: 2010Q4

REPORT INFORMATION
  Report Type: 
  Country: None (occurrence: None)
  Receive Date: 20101019
  Receipt Date: 20100917
  Transmission Date: 20110411
  Serious: Yes (Other)
  Sender: FDA-Public Use
  Company Number: US-BAYER-201036752NA

PATIENT
  Age: 28 Year
  Sex: Female

DRUGS (2)
  1. MIRENA [Suspect]
     Indication: CONTRACEPTION
     Route: 015
     Dates: start: 20100826, end: 20100903
  2. MIRENA [Suspect]
     Route: 015
     Dates: start: 20100903

REACTIONS (2)
  - DEVICE DISLOCATION [None]
  - PELVIC PAIN [None]
